FAERS Safety Report 5404517-2 (Version None)
Quarter: 2007Q3

REPORT INFORMATION
  Report Type: 
  Country: None (occurrence: None)
  Receive Date: 20070713
  Receipt Date: 20070508
  Transmission Date: 20080115
  Serious: Yes (Hospitalization)
  Sender: FDA-Public Use
  Company Number: US-JNJFOC-20070101682

PATIENT
  Age: 18 Year
  Sex: Female
  Weight: 63.5036 kg

DRUGS (2)
  1. ORTHO EVRA [Suspect]
     Indication: CONTRACEPTION
     Dosage: TRANSDERMAL
     Route: 062
     Dates: start: 20031001, end: 20040726
  2. DEPO-PROVERA [Suspect]
     Indication: CONTRACEPTION
     Dates: start: 20040126

REACTIONS (4)
  - ABDOMINAL PAIN UPPER [None]
  - METRORRHAGIA [None]
  - NAUSEA [None]
  - PULMONARY EMBOLISM [None]
